FAERS Safety Report 6521964-6 (Version None)
Quarter: 2009Q4

REPORT INFORMATION
  Report Type: 
  Country: None (occurrence: None)
  Receive Date: 20091214
  Receipt Date: 20090730
  Transmission Date: 20100525
  Serious: Yes (Other)
  Sender: FDA-Public Use
  Company Number: 647331

PATIENT
  Age: 59 Year
  Sex: Female
  Weight: 110.2 kg

DRUGS (2)
  1. PEGASYS [Suspect]
     Indication: HEPATITIS C
     Dosage: 180 UG 1 PER WEEK SUBCUTANEOUS
     Route: 058
     Dates: start: 20090522
  2. RIBAVIRIN [Suspect]
     Indication: HEPATITIS C
     Dosage: 600 MG 2 PER 1 DAY ORAL
     Route: 048
     Dates: start: 20080522

REACTIONS (3)
  - ANAEMIA [None]
  - ASTHENIA [None]
  - FATIGUE [None]
